FAERS Safety Report 20734012 (Version 2)
Quarter: 2022Q2

REPORT INFORMATION
  Report Type: Spontaneous
  Country: US (occurrence: US)
  Receive Date: 20220421
  Receipt Date: 20220504
  Transmission Date: 20220720
  Serious: Yes (Hospitalization)
  Sender: FDA-Public Use
  Company Number: US-TEVA-2022-US-2028403

PATIENT
  Age: 67 Year
  Sex: Male

DRUGS (2)
  1. AMIODARONE [Suspect]
     Active Substance: AMIODARONE
     Indication: Drug therapy
     Dosage: 200 MILLIGRAM DAILY;
     Route: 065
  2. TICAGRELOR [Suspect]
     Active Substance: TICAGRELOR
     Indication: Drug therapy
     Dosage: 1800 MILLIGRAM DAILY;
     Route: 065

REACTIONS (4)
  - Dyspnoea [Recovered/Resolved]
  - Atrial conduction time prolongation [Unknown]
  - Electrocardiogram P wave biphasic [Unknown]
  - Left ventricular failure [Unknown]
